FAERS Safety Report 21475484 (Version 2)
Quarter: 2022Q4

REPORT INFORMATION
  Report Type: Report from Study
  Country: US (occurrence: US)
  Receive Date: 20221019
  Receipt Date: 20221102
  Transmission Date: 20230113
  Serious: No
  Sender: FDA-Public Use
  Company Number: US-ABBVIE-4155887

PATIENT
  Age: 47 Year
  Sex: Male

DRUGS (1)
  1. SKYRIZI [Suspect]
     Active Substance: RISANKIZUMAB-RZAA
     Indication: Psoriasis
     Dosage: FORM STRENGTH: 150 MG?FREQUENCY TEXT: WEEK 4
     Route: 058
     Dates: start: 20220829

REACTIONS (5)
  - Skin infection [Unknown]
  - Cellulitis [Recovering/Resolving]
  - Infective tenosynovitis [Recovering/Resolving]
  - Lymphadenopathy [Recovering/Resolving]
  - Tendon injury [Unknown]

NARRATIVE: CASE EVENT DATE: 20221002
